FAERS Safety Report 8365107-5 (Version None)
Quarter: 2012Q2

REPORT INFORMATION
  Report Type: 
  Country: None (occurrence: None)
  Receive Date: 20120514
  Receipt Date: 20120418
  Transmission Date: 20120825
  Serious: Yes (Hospitalization)
  Sender: FDA-Public Use
  Company Number: AG-2012-0108

PATIENT
  Age: 61 Year
  Sex: Male

DRUGS (5)
  1. CHLORAMBUCIL (CHLORAMBUCIL) (TABLET) [Suspect]
     Indication: CHRONIC LYMPHOCYTIC LEUKAEMIA
     Dosage: (10 MG/M2) ORAL
     Route: 048
     Dates: start: 20100225
  2. CYCLOPHOSPHAMIDE [Concomitant]
  3. OFATUMUMAB(OFATUMUMAB) (INJECTION) [Suspect]
     Indication: CHRONIC LYMPHOCYTIC LEUKAEMIA
     Dosage: INTRAVENOUS (NOT OTHERWISE SPECIFIED)
     Route: 042
     Dates: start: 20100225
  4. FLUDARABINE PHOSPHATE [Concomitant]
  5. ONDANSETRON [Concomitant]

REACTIONS (1)
  - CLOSTRIDIAL INFECTION [None]
